FAERS Safety Report 12511216 (Version 2)
Quarter: 2016Q3

REPORT INFORMATION
  Report Type: Spontaneous
  Country: JP (occurrence: JP)
  Receive Date: 20160629
  Receipt Date: 20160711
  Transmission Date: 20161109
  Serious: Yes (Hospitalization, Other)
  Sender: FDA-Public Use
  Company Number: PHJP2016JP016647

PATIENT
  Age: 72 Year
  Sex: Female

DRUGS (6)
  1. AFINITOR [Suspect]
     Active Substance: EVEROLIMUS
     Dosage: 5 MG, QD
     Route: 048
  2. EXEMESTANE. [Suspect]
     Active Substance: EXEMESTANE
     Indication: BREAST CANCER RECURRENT
     Dosage: 25 MG, UNK
     Route: 065
  3. AFINITOR [Suspect]
     Active Substance: EVEROLIMUS
     Dosage: 10 MG, UNK
     Route: 048
  4. INSULIN [Concomitant]
     Active Substance: INSULIN NOS
     Indication: PRODUCT USED FOR UNKNOWN INDICATION
     Route: 065
  5. EXEMESTANE. [Suspect]
     Active Substance: EXEMESTANE
     Dosage: 25 MG, UNK
     Route: 065
  6. AFINITOR [Suspect]
     Active Substance: EVEROLIMUS
     Indication: BREAST CANCER RECURRENT
     Dosage: 5 MG, BID
     Route: 048

REACTIONS (18)
  - General physical health deterioration [Recovering/Resolving]
  - Oedema peripheral [Unknown]
  - Blood glucose increased [Recovered/Resolved]
  - Organising pneumonia [Recovered/Resolved]
  - Malignant neoplasm progression [Unknown]
  - Urticaria [Unknown]
  - Stomatitis [Recovering/Resolving]
  - Glycosylated haemoglobin increased [Recovering/Resolving]
  - Oedema [Recovered/Resolved]
  - Pyrexia [Recovering/Resolving]
  - Pruritus [Unknown]
  - Face oedema [Unknown]
  - Erythema [Recovered/Resolved]
  - Dyspnoea [Unknown]
  - Inflammation [Unknown]
  - Rash [Recovering/Resolving]
  - Renal impairment [Recovered/Resolved]
  - Metastases to bone [Unknown]
